FAERS Safety Report 9759199 (Version 1)
Quarter: 2013Q4

REPORT INFORMATION
  Report Type: Spontaneous
  Country: JP (occurrence: JP)
  Receive Date: 20131216
  Receipt Date: 20131216
  Transmission Date: 20140711
  Serious: Yes (Life-Threatening, Other)
  Sender: FDA-Public Use
  Company Number: JP-ASTRAZENECA-2013SE90647

PATIENT
  Age: 29 Year
  Sex: Female
  Weight: 113 kg

DRUGS (5)
  1. MARCAINE [Suspect]
     Indication: SPINAL ANAESTHESIA
     Route: 029
  2. FENTANYL [Concomitant]
     Indication: SPINAL ANAESTHESIA
     Route: 029
  3. MORPHINE HYDROCHLORIDE HYDRATE [Concomitant]
     Indication: SPINAL ANAESTHESIA
     Route: 029
  4. OXYTOCIN [Concomitant]
     Dosage: DOSE UNKNOWN
     Route: 065
  5. OXYTOCIN [Concomitant]
     Route: 015

REACTIONS (3)
  - Pulseless electrical activity [Recovering/Resolving]
  - Epilepsy [Recovered/Resolved]
  - Cardio-respiratory arrest [Recovering/Resolving]
